FAERS Safety Report 13064860 (Version 1)
Quarter: 2016Q4

REPORT INFORMATION
  Report Type: Spontaneous
  Country: DE (occurrence: DE)
  Receive Date: 20161227
  Receipt Date: 20161227
  Transmission Date: 20170207
  Serious: Yes (Hospitalization, Other)
  Sender: FDA-Public Use
  Company Number: DE-JNJFOC-20161219724

PATIENT
  Age: 60 Year
  Sex: Female
  Weight: 97 kg

DRUGS (1)
  1. RIVAROXABAN [Suspect]
     Active Substance: RIVAROXABAN
     Indication: PULMONARY EMBOLISM
     Route: 048
     Dates: start: 20160308, end: 20161212

REACTIONS (2)
  - Hysterectomy [Unknown]
  - Uterine cancer [Unknown]

NARRATIVE: CASE EVENT DATE: 20161214
